FAERS Safety Report 10836914 (Version 1)
Quarter: 2015Q1

REPORT INFORMATION
  Report Type: Spontaneous
  Country: KR (occurrence: None)
  Receive Date: 20150218
  Receipt Date: 20150218
  Transmission Date: 20150721
  Serious: Yes (Death)
  Sender: FDA-Public Use
  Company Number: 2015JUB00036

PATIENT
  Age: 10 Month
  Sex: Female

DRUGS (5)
  1. PLATELETS (PLATELETS) [Concomitant]
     Active Substance: HUMAN PLATELET, ALLOGENIC
  2. FRESH FROZEN PLASMA (FRESH FROZEN PLASMA) [Concomitant]
  3. NOVOSEVEN (RECOMBINANT ACTIVATED FACTOR VII) [Concomitant]
  4. CRYOPRECIPITATES (CRYOPRECIPITATES) [Concomitant]
  5. METHYLPREDNISOLONE. [Suspect]
     Active Substance: METHYLPREDNISOLONE
     Indication: PULMONARY ALVEOLAR HAEMORRHAGE

REACTIONS (2)
  - Acinetobacter infection [None]
  - Septic shock [None]
